FAERS Safety Report 4268873-3 (Version None)
Quarter: 2004Q1

REPORT INFORMATION
  Report Type: 
  Country: None (occurrence: None)
  Receive Date: 20040109
  Receipt Date: 20031229
  Transmission Date: 20041129
  Serious: Yes (Other)
  Sender: FDA-Public Use
  Company Number: 2003-DE-06481GD (0)

PATIENT
  Age: 38 Year
  Sex: Male

DRUGS (7)
  1. NEVIRAPINE (NEVIRAPINE) [Suspect]
     Indication: HIV INFECTION
  2. PREDNISONE [Suspect]
     Indication: IMMUNOSUPPRESSION
  3. CYCLOSPORINE [Suspect]
     Indication: IMMUNOSUPPRESSION
  4. MYCOPHENOLATE MOFETIL (MYCOPHENOLATE MOFETIL) [Suspect]
     Indication: IMMUNOSUPPRESSION
  5. INSULIN [Concomitant]
  6. LAMIVUDINE (LAMIVUDINE) [Concomitant]
  7. ABACAVIR (ABACAVIR) [Concomitant]

REACTIONS (10)
  - ANOGENITAL DYSPLASIA [None]
  - DRUG LEVEL BELOW THERAPEUTIC [None]
  - GLUCOSE TOLERANCE IMPAIRED [None]
  - HYPERTENSION [None]
  - KIDNEY TRANSPLANT REJECTION [None]
  - SINUSITIS BACTERIAL [None]
  - SKIN PAPILLOMA [None]
  - SQUAMOUS CELL CARCINOMA OF SKIN [None]
  - T-LYMPHOCYTE COUNT DECREASED [None]
  - WOUND INFECTION [None]
